FAERS Safety Report 12577917 (Version 1)
Quarter: 2016Q3

REPORT INFORMATION
  Report Type: Spontaneous
  Country: US (occurrence: US)
  Receive Date: 20160721
  Receipt Date: 20160721
  Transmission Date: 20161109
  Serious: Yes (Hospitalization, Other)
  Sender: FDA-Public Use
  Company Number: US-MACLEODS PHARMACEUTICALS US LTD-MAC2016002919

PATIENT

DRUGS (9)
  1. OLANZAPINE. [Interacting]
     Active Substance: OLANZAPINE
     Indication: PROPHYLAXIS OF NAUSEA AND VOMITING
     Dosage: 10 MG AT 3.15PM
     Route: 048
  2. LORAZEPAM. [Interacting]
     Active Substance: LORAZEPAM
     Indication: ANXIETY
     Dosage: 1 MG 2-3 TIMES DAILY, FOR SEVERAL MONTHS
     Route: 048
  3. LORAZEPAM. [Interacting]
     Active Substance: LORAZEPAM
     Indication: NAUSEA
     Dosage: 1 MG, AT 1.00 PM
     Route: 048
  4. LORAZEPAM. [Interacting]
     Active Substance: LORAZEPAM
     Dosage: 1 MG, ADDITIONAL DOSE FOR HER CHEMOTHERAPY AT ABOUT 3.45PM
     Route: 042
  5. FLUOROURACIL. [Concomitant]
     Active Substance: FLUOROURACIL
     Indication: PANCREATIC CARCINOMA
     Dosage: 2000 MG/M2 OVER 46 HOURS
     Route: 042
  6. FOLINIC ACID [Concomitant]
     Active Substance: LEUCOVORIN
     Indication: PANCREATIC CARCINOMA
     Dosage: UNK
     Route: 065
  7. OXALIPLATIN. [Concomitant]
     Active Substance: OXALIPLATIN
     Indication: PANCREATIC CARCINOMA
     Dosage: 60 MG/M2 OVER 2 HOURS
     Route: 042
  8. LORAZEPAM. [Interacting]
     Active Substance: LORAZEPAM
     Indication: PREMEDICATION
     Dosage: 1 MG 2-3 TIMES DAILY, FOR SEVERAL MONTHS
     Route: 048
  9. OLANZAPINE. [Suspect]
     Active Substance: OLANZAPINE
     Indication: NAUSEA
     Dosage: 10 MG, QD
     Route: 048

REACTIONS (7)
  - Unresponsive to stimuli [Recovered/Resolved]
  - Toxicity to various agents [Recovered/Resolved]
  - Off label use [Recovered/Resolved]
  - Drug interaction [Recovered/Resolved]
  - Hypotension [Recovered/Resolved]
  - Delirium [Recovered/Resolved]
  - Respiratory depression [Recovered/Resolved]
